FAERS Safety Report 11113558 (Version 2)
Quarter: 2015Q2

REPORT INFORMATION
  Report Type: Spontaneous
  Country: TW (occurrence: TW)
  Receive Date: 20150514
  Receipt Date: 20150522
  Transmission Date: 20150821
  Serious: Yes (Death, Other)
  Sender: FDA-Public Use
  Company Number: TW-CIPLA LTD.-2015TW03890

PATIENT

DRUGS (11)
  1. TAMOXIFEN [Suspect]
     Active Substance: TAMOXIFEN
     Indication: BREAST ANGIOSARCOMA
     Dosage: 150 MG/M2/DAY, DIVIDED INTO FOUR DOSES AND ADMINISTERED DAILY FOR SEVEN DAYS
     Route: 065
     Dates: start: 200408
  2. CISPLATIN. [Suspect]
     Active Substance: CISPLATIN
     Indication: BREAST ANGIOSARCOMA
  3. PACLITAXEL. [Suspect]
     Active Substance: PACLITAXEL
     Indication: BREAST ANGIOSARCOMA
  4. CISPLATIN. [Suspect]
     Active Substance: CISPLATIN
     Indication: TRAUMATIC HAEMOTHORAX
  5. EPIRUBICIN [Suspect]
     Active Substance: EPIRUBICIN
     Indication: BREAST ANGIOSARCOMA
     Dosage: 30 MG/M2/DAY FOR THREE DAYS, REPEATED EVERY FOUR WEEKS
     Route: 065
     Dates: start: 200408
  6. EPIRUBICIN [Suspect]
     Active Substance: EPIRUBICIN
     Indication: TRAUMATIC HAEMOTHORAX
  7. MESNA. [Suspect]
     Active Substance: MESNA
     Dosage: UNK
  8. PACLITAXEL. [Suspect]
     Active Substance: PACLITAXEL
     Indication: TRAUMATIC HAEMOTHORAX
  9. TAMOXIFEN [Suspect]
     Active Substance: TAMOXIFEN
     Indication: TRAUMATIC HAEMOTHORAX
  10. IFOSFAMIDE. [Suspect]
     Active Substance: IFOSFAMIDE
     Indication: BREAST ANGIOSARCOMA
     Dosage: 2.5 G/M2/DAY FOR THREE DAYS
     Dates: start: 200408
  11. IFOSFAMIDE. [Suspect]
     Active Substance: IFOSFAMIDE
     Indication: TRAUMATIC HAEMOTHORAX

REACTIONS (10)
  - Vomiting [Unknown]
  - Neutropenia [Unknown]
  - Thrombocytopenia [Unknown]
  - Decreased appetite [Unknown]
  - Pleural effusion [Unknown]
  - Flank pain [Unknown]
  - Anaemia [Unknown]
  - Disease progression [Fatal]
  - Metastasis [Unknown]
  - Dyspnoea [Unknown]
